FAERS Safety Report 10421814 (Version 2)
Quarter: 2014Q3

REPORT INFORMATION
  Report Type: Spontaneous
  Country: ZA (occurrence: ZA)
  Receive Date: 20140901
  Receipt Date: 20140901
  Transmission Date: 20150326
  Serious: Yes (Hospitalization)
  Sender: FDA-Public Use
  Company Number: ZA-009507513-1407ZAF011202

PATIENT
  Age: 32 Year
  Sex: Female

DRUGS (3)
  1. SINGULAIR [Concomitant]
     Active Substance: MONTELUKAST SODIUM
     Indication: WHEEZING
     Dosage: DAILY, PRN
     Route: 048
     Dates: start: 2012
  2. CLARITYNE [Suspect]
     Active Substance: LORATADINE
     Indication: RHINITIS ALLERGIC
     Dosage: 1-2 DAILY
     Route: 048
     Dates: start: 201402, end: 20140609
  3. IMPLANON [Concomitant]
     Active Substance: ETONOGESTREL
     Indication: CONTRACEPTION
     Dosage: UNK
     Route: 059
     Dates: start: 201311

REACTIONS (3)
  - Epistaxis [Recovered/Resolved]
  - Muscle spasms [Recovering/Resolving]
  - Insomnia [Unknown]

NARRATIVE: CASE EVENT DATE: 2014
